FAERS Safety Report 8170853-2 (Version None)
Quarter: 2012Q1

REPORT INFORMATION
  Report Type: 
  Country: None (occurrence: None)
  Receive Date: 20120228
  Receipt Date: 20120223
  Transmission Date: 20120608
  Serious: Yes (Other)
  Sender: FDA-Public Use
  Company Number: US-ABBOTT-11P-163-0725700-00

PATIENT
  Sex: Male

DRUGS (4)
  1. HUMIRA [Suspect]
     Indication: RHEUMATOID ARTHRITIS
     Dates: start: 20110217
  2. GLYBURIDE [Concomitant]
     Indication: PRODUCT USED FOR UNKNOWN INDICATION
  3. PREDNISONE TAB [Concomitant]
     Indication: RHEUMATOID ARTHRITIS
  4. LORTAB [Concomitant]
     Indication: PAIN
     Dosage: AS NEEDED

REACTIONS (13)
  - FEELING ABNORMAL [None]
  - CATARACT [None]
  - ARTHRALGIA [None]
  - MUSCULOSKELETAL PAIN [None]
  - EYE INFECTION [None]
  - INSOMNIA [None]
  - OEDEMA PERIPHERAL [None]
  - GLAUCOMA [None]
  - PAIN IN EXTREMITY [None]
  - RHEUMATOID ARTHRITIS [None]
  - OCULAR HYPERAEMIA [None]
  - SINUSITIS [None]
  - PAIN [None]
